FAERS Safety Report 14897978 (Version 2)
Quarter: 2018Q2

REPORT INFORMATION
  Report Type: Spontaneous
  Country: US (occurrence: US)
  Receive Date: 20180515
  Receipt Date: 20180517
  Transmission Date: 20180711
  Serious: No
  Sender: FDA-Public Use
  Company Number: US-SA-2017SA238424

PATIENT

DRUGS (6)
  1. XULTOPHY 100/3.6 [Concomitant]
     Active Substance: INSULIN DEGLUDEC\LIRAGLUTIDE
  2. SOLOSTAR [Suspect]
     Active Substance: DEVICE
  3. TRAJENTA [Concomitant]
     Active Substance: LINAGLIPTIN
  4. JARDIANCE [Concomitant]
     Active Substance: EMPAGLIFLOZIN
  5. HUMALOG [Concomitant]
     Active Substance: INSULIN LISPRO
  6. TOUJEO [Suspect]
     Active Substance: INSULIN GLARGINE
     Route: 051

REACTIONS (1)
  - Glycosylated haemoglobin increased [Unknown]
